FAERS Safety Report 16817763 (Version 3)
Quarter: 2019Q4

REPORT INFORMATION
  Report Type: Spontaneous
  Country: US (occurrence: US)
  Receive Date: 20190917
  Receipt Date: 20191028
  Transmission Date: 20200122
  Serious: No
  Sender: FDA-Public Use
  Company Number: US-AMGEN-USASP2019151172

PATIENT
  Age: 77 Year
  Sex: Female
  Weight: 90.7 kg

DRUGS (1)
  1. NEULASTA [Suspect]
     Active Substance: PEGFILGRASTIM
     Indication: PRODUCT USED FOR UNKNOWN INDICATION
     Dosage: 6 MILLIGRAM
     Route: 065

REACTIONS (1)
  - Device use error [Unknown]

NARRATIVE: CASE EVENT DATE: 20190911
